FAERS Safety Report 26095557 (Version 1)
Quarter: 2025Q4

REPORT INFORMATION
  Report Type: Spontaneous
  Country: US (occurrence: US)
  Receive Date: 20251127
  Receipt Date: 20251127
  Transmission Date: 20260117
  Serious: No
  Sender: Kenvue
  Company Number: US-KENVUE-20251013586

PATIENT
  Sex: Female

DRUGS (17)
  1. IMODIUM [Suspect]
     Active Substance: LOPERAMIDE HYDROCHLORIDE
     Indication: Diarrhoea
     Dosage: 1 DOSAGE FORM, ONCE A DAY
     Route: 065
     Dates: start: 2024
  2. REMODULIN [Concomitant]
     Active Substance: TREPROSTINIL
     Indication: Pulmonary arterial hypertension
     Dosage: 0.028 ?G/KG
  3. REMODULIN [Concomitant]
     Active Substance: TREPROSTINIL
     Dosage: 0.01 MICROGRAM/KILOGRAM
  4. REMODULIN [Concomitant]
     Active Substance: TREPROSTINIL
     Dosage: 0.029 MICROGRAM/KILOGRAM
  5. REMODULIN [Concomitant]
     Active Substance: TREPROSTINIL
     Dosage: 0.03 MICROGRAM/KILOGRAM
  6. REMODULIN [Concomitant]
     Active Substance: TREPROSTINIL
     Dosage: 0.031 MICROGRAM/KILOGRAM
  7. REMODULIN [Concomitant]
     Active Substance: TREPROSTINIL
     Dosage: 0.034 MICROGRAM/KILOGRAM
  8. REMODULIN [Concomitant]
     Active Substance: TREPROSTINIL
     Dosage: 0.040 MICROGRAM/KILOGRAM
  9. REMODULIN [Concomitant]
     Active Substance: TREPROSTINIL
     Dosage: 0.042 MICROGRAM/KILOGRAM
  10. REMODULIN [Concomitant]
     Active Substance: TREPROSTINIL
     Dosage: 0.045 MICROGRAM/KILOGRAM
  11. REMODULIN [Concomitant]
     Active Substance: TREPROSTINIL
     Dosage: 0.047 MICROGRAM/KILOGRAM
  12. REMODULIN [Concomitant]
     Active Substance: TREPROSTINIL
     Dosage: 0.05 MICROGRAM/KILOGRAM
  13. REMODULIN [Concomitant]
     Active Substance: TREPROSTINIL
     Dosage: UNKNOWN
  14. TYVASO [Concomitant]
     Active Substance: TREPROSTINIL
     Indication: Pulmonary arterial hypertension
     Dosage: 72 MICROGRAM, FOUR TIME A DAY
     Dates: start: 202308, end: 2024
  15. TYVASO [Concomitant]
     Active Substance: TREPROSTINIL
     Dosage: UNK
  16. SILDENAFIL [Concomitant]
     Active Substance: SILDENAFIL
     Indication: Product used for unknown indication
     Dosage: UNK
     Route: 065
  17. PEPTO-BISMOL [Concomitant]
     Active Substance: BISMUTH SUBSALICYLATE
     Indication: Diarrhoea
     Route: 065

REACTIONS (1)
  - Off label use [Unknown]

NARRATIVE: CASE EVENT DATE: 20240101
